FAERS Safety Report 8876507 (Version 2)
Quarter: 2012Q4

REPORT INFORMATION
  Report Type: Report from Study
  Country: IT (occurrence: IT)
  Receive Date: 20121030
  Receipt Date: 20121120
  Transmission Date: 20130627
  Serious: Yes (Hospitalization)
  Sender: FDA-Public Use
  Company Number: IT-AMGEN-ITACT2012068373

PATIENT
  Age: 73 Year
  Sex: Female

DRUGS (1)
  1. DENOSUMAB [Suspect]
     Indication: OSTEOPOROSIS POSTMENOPAUSAL
     Dosage: UNK UNK, q6mo
     Route: 058
     Dates: start: 20050211

REACTIONS (2)
  - Uterine cervical squamous metaplasia [Recovered/Resolved]
  - Uterine polyp [Unknown]
